FAERS Safety Report 4761248-X (Version None)
Quarter: 2005Q3

REPORT INFORMATION
  Report Type: 
  Country: None (occurrence: None)
  Receive Date: 20050902
  Receipt Date: 20050902
  Transmission Date: 20060218
  Serious: Yes (Disabling, Other)
  Sender: FDA-Public Use
  Company Number: None

PATIENT
  Age: 62 Year
  Sex: Female
  Weight: 58.9676 kg

DRUGS (1)
  1. FOSAMAX [Suspect]
     Indication: OSTEOPOROSIS
     Dosage: 35 MG Q WEEKLY
     Dates: start: 20031201, end: 20050501

REACTIONS (3)
  - FEELING ABNORMAL [None]
  - JAW DISORDER [None]
  - OSTEONECROSIS [None]
